FAERS Safety Report 15483240 (Version 1)
Quarter: 2018Q4

REPORT INFORMATION
  Report Type: Spontaneous
  Country: US (occurrence: US)
  Receive Date: 20181003
  Receipt Date: 20181003
  Transmission Date: 20190205
  Serious: No
  Sender: FDA-Public Use
  Company Number: None

PATIENT
  Age: 86 Year
  Sex: Female

DRUGS (1)
  1. DALFAMPRIDINE ER 10MG MYLAN [Suspect]
     Active Substance: DALFAMPRIDINE
     Indication: PRODUCT USED FOR UNKNOWN INDICATION
     Route: 048
     Dates: start: 20180927, end: 20180929

REACTIONS (3)
  - Refusal of treatment by patient [None]
  - Urinary incontinence [None]
  - Product substitution issue [None]

NARRATIVE: CASE EVENT DATE: 20180928
